FAERS Safety Report 5175556-4 (Version None)
Quarter: 2006Q4

REPORT INFORMATION
  Report Type: 
  Country: None (occurrence: None)
  Receive Date: 20061215
  Receipt Date: 20061121
  Transmission Date: 20070319
  Serious: Yes (Other)
  Sender: FDA-Public Use
  Company Number: PHEH2006US14497

PATIENT
  Age: 95 Year
  Sex: Female
  Weight: 50.793 kg

DRUGS (8)
  1. SANDOSTATIN LAR [Suspect]
     Indication: CARCINOID SYNDROME
     Dosage: 20 MG, TIW
     Dates: start: 20061121
  2. SANDOSTATIN LAR [Suspect]
     Dosage: 30 MG Q28DAYS
     Route: 030
     Dates: start: 20061024, end: 20061120
  3. DIOVAN [Concomitant]
  4. LEVOTHYROXINE SODIUM [Concomitant]
  5. HYDROCHLOROTHIAZIDE [Concomitant]
  6. K-DUR 10 [Concomitant]
  7. LOTREL [Concomitant]
     Indication: HYPERTENSION
  8. TRAMADOL HCL [Concomitant]

REACTIONS (2)
  - MYOCARDIAL INFARCTION [None]
  - TROPONIN INCREASED [None]
